FAERS Safety Report 6046135-1 (Version None)
Quarter: 2009Q1

REPORT INFORMATION
  Report Type: 
  Country: None (occurrence: None)
  Receive Date: 20090121
  Receipt Date: 20090121
  Transmission Date: 20090719
  Serious: No
  Sender: FDA-Public Use
  Company Number: None

PATIENT
  Age: 77 Year
  Sex: Male
  Weight: 103.2 kg

DRUGS (1)
  1. PREGABALIN [Suspect]
     Indication: DIABETIC NEUROPATHY
     Dosage: 75MG BID PO
     Route: 048
     Dates: start: 20081204, end: 20081215

REACTIONS (2)
  - DIARRHOEA [None]
  - MUSCLE SPASMS [None]
